FAERS Safety Report 5363419-0 (Version None)
Quarter: 2007Q2

REPORT INFORMATION
  Report Type: 
  Country: None (occurrence: None)
  Receive Date: 20070530
  Receipt Date: 20070103
  Transmission Date: 20071010
  Serious: No
  Sender: FDA-Public Use
  Company Number: 2007PV027797

PATIENT
  Age: 63 Year
  Sex: Female

DRUGS (5)
  1. BYETTA [Suspect]
     Indication: DIABETES MELLITUS NON-INSULIN-DEPENDENT
     Dosage: 5 MCG; 5 MCG : BID; SC
     Route: 058
     Dates: start: 20061214, end: 20061217
  2. BYETTA [Suspect]
     Indication: DIABETES MELLITUS NON-INSULIN-DEPENDENT
     Dosage: 5 MCG; 5 MCG : BID; SC
     Route: 058
     Dates: start: 20070101, end: 20070101
  3. BYETTA [Suspect]
     Dosage: 10 MCG; BID;SC
     Route: 058
     Dates: start: 20070101
  4. ACTOS [Concomitant]
  5. INFLUENZA VACCINE [Concomitant]

REACTIONS (9)
  - ANOREXIA [None]
  - ASTHENIA [None]
  - DIARRHOEA [None]
  - FEELING HOT AND COLD [None]
  - NAUSEA [None]
  - PAIN [None]
  - PYREXIA [None]
  - VOMITING [None]
  - WEIGHT DECREASED [None]
